FAERS Safety Report 6497880-5 (Version None)
Quarter: 2009Q4

REPORT INFORMATION
  Report Type: 
  Country: None (occurrence: None)
  Receive Date: 20091215
  Receipt Date: 20091203
  Transmission Date: 20100525
  Serious: Yes (Other)
  Sender: FDA-Public Use
  Company Number: JP-PFIZER INC-2009308299

PATIENT

DRUGS (2)
  1. UNASYN [Suspect]
     Route: 042
  2. CLINDAMYCIN [Concomitant]

REACTIONS (1)
  - INTERSTITIAL LUNG DISEASE [None]
